FAERS Safety Report 14646740 (Version 1)
Quarter: 2018Q1

REPORT INFORMATION
  Report Type: Spontaneous
  Country: US (occurrence: US)
  Receive Date: 20180316
  Receipt Date: 20180316
  Transmission Date: 20180509
  Serious: No
  Sender: FDA-Public Use
  Company Number: US-009507513-1803USA005355

PATIENT
  Sex: Male

DRUGS (3)
  1. ZINPLAVA [Suspect]
     Active Substance: BEZLOTOXUMAB
     Route: 042
  2. ZINPLAVA [Suspect]
     Active Substance: BEZLOTOXUMAB
     Indication: CLOSTRIDIUM DIFFICILE INFECTION
     Route: 042
  3. DIFICID [Suspect]
     Active Substance: FIDAXOMICIN

REACTIONS (2)
  - Probiotic therapy [Unknown]
  - Treatment failure [Unknown]
